FAERS Safety Report 9377860 (Version 1)
Quarter: 2013Q3

REPORT INFORMATION
  Report Type: Spontaneous
  Country: US (occurrence: US)
  Receive Date: 20130701
  Receipt Date: 20130701
  Transmission Date: 20140515
  Serious: Yes (Hospitalization, Other)
  Sender: FDA-Public Use
  Company Number: PHHY2013US065138

PATIENT
  Age: 30 Year
  Sex: Female

DRUGS (11)
  1. REMIFENTANIL [Suspect]
     Indication: ANALGESIC THERAPY
     Dosage: 2 UG INITIALLY
  2. REMIFENTANIL [Suspect]
     Dosage: 40 UG BOLUS DOSE
  3. FENTANYL [Suspect]
     Indication: ANALGESIC THERAPY
     Dosage: 150 UG
     Route: 042
  4. HEPARIN [Suspect]
     Indication: ANTICOAGULANT THERAPY
     Route: 058
  5. SODIUM CHLORIDE SANDOZ [Suspect]
     Dosage: 500 ML
     Route: 040
  6. MISOPROSTOL [Suspect]
  7. ETOMIDATE [Suspect]
     Dosage: 20 MG
     Route: 042
  8. SUCCINYLCHOLINE [Suspect]
     Dosage: 120 MG
  9. MIDAZOLAM [Concomitant]
     Dosage: 4 MG
     Route: 042
  10. KETAMINE [Concomitant]
     Dosage: 20 MG
     Route: 042
  11. PROPOFOL [Concomitant]
     Dosage: 40 MG
     Route: 042

REACTIONS (10)
  - Toxicity to various agents [Unknown]
  - Muscle rigidity [Unknown]
  - Cardio-respiratory arrest [Recovering/Resolving]
  - Apnoea [Recovering/Resolving]
  - Respiratory acidosis [Recovering/Resolving]
  - Pulse absent [Recovering/Resolving]
  - Accidental overdose [Unknown]
  - Wrong technique in drug usage process [Unknown]
  - Drug dispensing error [Unknown]
  - Maternal exposure during pregnancy [Unknown]
